FAERS Safety Report 8997454 (Version 1)
Quarter: 2013Q1

REPORT INFORMATION
  Report Type: Spontaneous
  Country: US (occurrence: US)
  Receive Date: 20130104
  Receipt Date: 20130104
  Transmission Date: 20140127
  Serious: Yes (Hospitalization)
  Sender: FDA-Public Use
  Company Number: US-COVIDIEN/TYCO HEALTHCARE/MALLINCKRODT-T201203472

PATIENT
  Age: 43 Year
  Sex: Female

DRUGS (14)
  1. OPTIRAY [Suspect]
     Indication: COMPUTERISED TOMOGRAM
     Dosage: 90 ML, SINGLE
     Route: 042
     Dates: start: 20120831, end: 20120831
  2. CELEXA                             /00582602/ [Concomitant]
     Dosage: UNK
  3. GABAPENTIN [Concomitant]
     Dosage: UNK
  4. LORTAB                             /00607101/ [Concomitant]
     Dosage: UNK
  5. HYDROMORPHONE [Concomitant]
     Dosage: UNK
  6. SYNTHROID [Concomitant]
     Dosage: UNK
  7. METHYLPREDISOLONE [Concomitant]
     Indication: PREMEDICATION
     Dosage: 32 MG, 12 HOURS PRIOR TO SCAN
     Dates: start: 20120831, end: 20120831
  8. METHYLPREDISOLONE [Concomitant]
     Dosage: 32 MG, 2 HOURS PRIOR TO SCAN
     Dates: start: 20120831, end: 20120831
  9. LISINOPRIL [Concomitant]
     Dosage: UNK
  10. ZANTAC [Concomitant]
     Dosage: UNK
  11. TRAMADOL [Concomitant]
     Dosage: UNK
  12. LORAZEPAM [Concomitant]
     Dosage: UNK
  13. METOPROLOL [Concomitant]
     Dosage: UNK
  14. TOPIRAMATE [Concomitant]
     Dosage: UNK

REACTIONS (4)
  - Dyspnoea [Recovered/Resolved]
  - Nasal congestion [Recovered/Resolved]
  - Vomiting [Recovered/Resolved]
  - Chest pain [Recovered/Resolved]
